FAERS Safety Report 8193227-7 (Version None)
Quarter: 2012Q1

REPORT INFORMATION
  Report Type: 
  Country: None (occurrence: None)
  Receive Date: 20120308
  Receipt Date: 20120229
  Transmission Date: 20120608
  Serious: Yes (Disabling)
  Sender: FDA-Public Use
  Company Number: JP-SANOFI-AVENTIS-2012SA015282

PATIENT
  Age: 72 Year
  Sex: Female
  Weight: 55 kg

DRUGS (7)
  1. ZOLPIDEM [Suspect]
     Indication: INSOMNIA
     Route: 048
     Dates: start: 20100826
  2. DOXAZOSIN MESYLATE [Concomitant]
     Indication: HYPERTENSION
     Dates: start: 20100311
  3. PLAVIX [Suspect]
     Indication: CEREBRAL INFARCTION
     Route: 048
     Dates: start: 20100311
  4. PRAVASTATIN [Concomitant]
     Dates: start: 20100311
  5. ALLOPURINOL [Concomitant]
     Indication: GOUT
     Dates: start: 20100311
  6. UNIPHYL [Concomitant]
     Dates: start: 20110509
  7. FLUTICASONE PROPIONATE [Concomitant]
     Indication: ASTHMA
     Dates: start: 20110516

REACTIONS (1)
  - HAEMORRHAGIC CEREBRAL INFARCTION [None]
